FAERS Safety Report 11440814 (Version 1)
Quarter: 2015Q3

REPORT INFORMATION
  Report Type: Spontaneous
  Country: US (occurrence: US)
  Receive Date: 20150821
  Receipt Date: 20150821
  Transmission Date: 20151125
  Serious: No
  Sender: FDA-Public Use
  Company Number: US-ELI_LILLY_AND_COMPANY-US200709006574

PATIENT
  Age: 74 Year
  Sex: Male

DRUGS (9)
  1. CYMBALTA [Suspect]
     Active Substance: DULOXETINE HYDROCHLORIDE
     Dosage: 20 MG, EACH MORNING
     Dates: start: 20070906
  2. OXYCONTIN [Concomitant]
     Active Substance: OXYCODONE HYDROCHLORIDE
  3. LYRICA [Concomitant]
     Active Substance: PREGABALIN
  4. FISH OIL [Concomitant]
     Active Substance: FISH OIL
  5. DIAZEPAM. [Concomitant]
     Active Substance: DIAZEPAM
  6. CORTEF [Concomitant]
     Active Substance: HYDROCORTISONE
  7. LEVODOPA-CARBIDOPA [Concomitant]
     Active Substance: CARBIDOPA\LEVODOPA
  8. WELLBUTRIN [Concomitant]
     Active Substance: BUPROPION HYDROCHLORIDE
  9. RAMELTEON [Concomitant]
     Active Substance: RAMELTEON

REACTIONS (8)
  - Dizziness [Not Recovered/Not Resolved]
  - Rash [Recovered/Resolved]
  - Abnormal faeces [Not Recovered/Not Resolved]
  - Cognitive disorder [Not Recovered/Not Resolved]
  - Abdominal pain upper [Recovered/Resolved]
  - Disorientation [Unknown]
  - Nausea [Recovered/Resolved]
  - Insomnia [Not Recovered/Not Resolved]

NARRATIVE: CASE EVENT DATE: 20070906
